FAERS Safety Report 12808061 (Version 2)
Quarter: 2016Q4

REPORT INFORMATION
  Report Type: Spontaneous
  Country: FR (occurrence: FR)
  Receive Date: 20161004
  Receipt Date: 20161005
  Transmission Date: 20170207
  Serious: Yes (Other)
  Sender: FDA-Public Use
  Company Number: FR-JNJFOC-20160908415

PATIENT
  Sex: Female

DRUGS (1)
  1. RISPERDAL CONSTA [Suspect]
     Active Substance: RISPERIDONE
     Indication: ACCIDENTAL EXPOSURE TO PRODUCT
     Route: 050
     Dates: start: 201608, end: 201608

REACTIONS (5)
  - Needle issue [Unknown]
  - Exposure to contaminated device [Unknown]
  - Haemorrhage [Unknown]
  - Injury associated with device [Unknown]
  - Device malfunction [Unknown]

NARRATIVE: CASE EVENT DATE: 20160816
